FAERS Safety Report 16671709 (Version 2)
Quarter: 2019Q4

REPORT INFORMATION
  Report Type: Spontaneous
  Country: US (occurrence: US)
  Receive Date: 20190806
  Receipt Date: 20191211
  Transmission Date: 20200122
  Serious: Yes (Hospitalization, Disabling, Other)
  Sender: FDA-Public Use
  Company Number: US-009507513-1908USA000582

PATIENT
  Sex: Female

DRUGS (5)
  1. SINEMET [Suspect]
     Active Substance: CARBIDOPA\LEVODOPA
     Indication: PARKINSON^S DISEASE
     Dosage: 4 TABLETS PER DAY
     Route: 048
     Dates: start: 1985, end: 2004
  2. SINEMET [Suspect]
     Active Substance: CARBIDOPA\LEVODOPA
     Dosage: 4 TABLETS PER DAY
     Route: 048
     Dates: start: 2004
  3. NASONEX [Suspect]
     Active Substance: MOMETASONE FUROATE
     Dosage: UNK
  4. CARBIDOPA (+) LEVODOPA [Suspect]
     Active Substance: CARBIDOPA\LEVODOPA
     Indication: PARKINSON^S DISEASE
     Dosage: 4 TABLETS A DAY
     Dates: start: 2004, end: 2004
  5. CARBIDOPA (+) LEVODOPA [Suspect]
     Active Substance: CARBIDOPA\LEVODOPA
     Dosage: 6 TABLETS A DAY
     Dates: start: 2004, end: 2004

REACTIONS (11)
  - Osteonecrosis [Unknown]
  - Drug ineffective [Unknown]
  - Systemic lupus erythematosus [Unknown]
  - Drug hypersensitivity [Unknown]
  - Blindness [Unknown]
  - Gait disturbance [Not Recovered/Not Resolved]
  - Asthma [Unknown]
  - Coma [Unknown]
  - Upper respiratory tract infection [Unknown]
  - Blood glucose increased [Unknown]
  - Adverse event [Unknown]

NARRATIVE: CASE EVENT DATE: 2004
